FAERS Safety Report 8530356-X (Version None)
Quarter: 2012Q3

REPORT INFORMATION
  Report Type: 
  Country: None (occurrence: None)
  Receive Date: 20120723
  Receipt Date: 20120717
  Transmission Date: 20120928
  Serious: No
  Sender: FDA-Public Use
  Company Number: US-PFIZER INC-2012156739

PATIENT
  Sex: Male

DRUGS (1)
  1. VIAGRA [Suspect]
     Indication: ERECTILE DYSFUNCTION
     Dosage: 50 MG, AS NEEDED (TAKE 1 TABLET BY MOUTH, AT LEAST 30 MIN PRIOR TO ACTIVITY)
     Route: 048

REACTIONS (1)
  - DRUG INEFFECTIVE [None]
